FAERS Safety Report 16594665 (Version 3)
Quarter: 2020Q1

REPORT INFORMATION
  Report Type: Report from Study
  Country: MY (occurrence: MY)
  Receive Date: 20190718
  Receipt Date: 20200207
  Transmission Date: 20200409
  Serious: Yes (Other)
  Sender: FDA-Public Use
  Company Number: PHHY2018MY056438

PATIENT
  Age: 73 Year
  Sex: Female

DRUGS (29)
  1. LOPERAMIDE [Concomitant]
     Active Substance: LOPERAMIDE
     Indication: DIARRHOEA
     Dosage: 2 OT, UNK
     Route: 048
     Dates: start: 20171107
  2. MULTI-VIT [Concomitant]
     Active Substance: VITAMINS
     Indication: LETHARGY
     Dosage: 1 OT, UNK
     Route: 048
     Dates: start: 20180703, end: 20180709
  3. MORPHINE [Concomitant]
     Active Substance: MORPHINE
     Indication: ANTITUSSIVE THERAPY
  4. BROMHEXIN [Concomitant]
     Active Substance: BROMHEXINE
     Indication: RENAL CELL CARCINOMA
     Dosage: 8 MG, UNK
     Route: 048
     Dates: start: 20180216, end: 20180319
  5. ASCORBIC ACID. [Concomitant]
     Active Substance: ASCORBIC ACID
     Indication: HAEMOGLOBIN DECREASED
     Dosage: 100 OT, UNK
     Route: 048
     Dates: start: 20180102, end: 20180131
  6. ORAL REHYDRATION SALT [Concomitant]
     Indication: DIARRHOEA
     Dosage: 1 OT, UNK
     Route: 048
     Dates: start: 20180528, end: 20180603
  7. FELODIPINE. [Concomitant]
     Active Substance: FELODIPINE
     Indication: HYPERTENSION
     Dosage: 10 MG, QD
     Route: 065
     Dates: start: 1997, end: 20180702
  8. CEPHALEXIN. [Concomitant]
     Active Substance: CEPHALEXIN
     Indication: PROTEINURIA
     Dosage: 250 OT, UNK
     Route: 048
     Dates: start: 20171205, end: 20171209
  9. CHLORAMPHENICOL [Concomitant]
     Active Substance: CHLORAMPHENICOL
     Indication: EYE PRURITUS
  10. CARBAMIDE [Concomitant]
     Active Substance: UREA
     Indication: PROPHYLAXIS
     Dosage: 1 OT, UNK
     Route: 061
     Dates: start: 20171107
  11. MORPHINE [Concomitant]
     Active Substance: MORPHINE
     Indication: BACK PAIN
     Dosage: 2.5 OT, UNK
     Route: 048
     Dates: start: 20171122, end: 20180103
  12. MORPHINE [Concomitant]
     Active Substance: MORPHINE
     Indication: PAIN
     Dosage: 7 OT, UNK
     Route: 048
     Dates: start: 20180706
  13. METOCLOPRAMIDE. [Concomitant]
     Active Substance: METOCLOPRAMIDE
     Indication: NAUSEA
     Dosage: 10 OT, UNK
     Route: 048
     Dates: start: 20171122, end: 20171128
  14. METOCLOPRAMIDE. [Concomitant]
     Active Substance: METOCLOPRAMIDE
     Dosage: 10 OT, UNK
     Route: 048
     Dates: start: 20180521, end: 20180527
  15. LACTULOSE. [Concomitant]
     Active Substance: LACTULOSE
     Dosage: 15 OT, UNK
     Route: 048
     Dates: start: 20180612
  16. TRAMADOL. [Concomitant]
     Active Substance: TRAMADOL
     Indication: BACK PAIN
     Dosage: 50 OT, UNK
     Route: 048
     Dates: start: 20171107, end: 20171206
  17. METHYL SALICYLATE [Concomitant]
     Active Substance: METHYL SALICYLATE
     Indication: BACK PAIN
     Dosage: 1 OT, UNK
     Route: 061
     Dates: start: 20180306
  18. ALPRAZOLAM. [Concomitant]
     Active Substance: ALPRAZOLAM
     Indication: INSOMNIA
     Dosage: 0.5 OT, UNK
     Route: 048
     Dates: start: 20180515, end: 20180521
  19. VOTRIENT [Suspect]
     Active Substance: PAZOPANIB HYDROCHLORIDE
     Dosage: 400 MG, UNK
     Route: 048
     Dates: start: 20180102, end: 20180607
  20. MORPHINE HCL [Concomitant]
     Active Substance: MORPHINE HYDROCHLORIDE
     Indication: MUSCULOSKELETAL CHEST PAIN
     Dosage: 5 OT, UNK
     Route: 048
     Dates: start: 20180612, end: 20180706
  21. VOTRIENT [Suspect]
     Active Substance: PAZOPANIB HYDROCHLORIDE
     Indication: RENAL CELL CARCINOMA
     Dosage: 400 MG, UNK
     Route: 048
     Dates: start: 20171107, end: 20171204
  22. LACTULOSE. [Concomitant]
     Active Substance: LACTULOSE
     Indication: CONSTIPATION PROPHYLAXIS
     Dosage: 15 OT, UNK
     Route: 048
     Dates: start: 20171122
  23. LOPERAMIDE [Concomitant]
     Active Substance: LOPERAMIDE
     Dosage: 2 OT, UNK
     Route: 048
     Dates: start: 20180528, end: 20180603
  24. CHLORAMPHENICOL [Concomitant]
     Active Substance: CHLORAMPHENICOL
     Indication: LACRIMATION INCREASED
     Dosage: 1 OT, UNK
     Route: 065
     Dates: start: 20180502, end: 20180508
  25. CHARCOAL ACTIVATED [Concomitant]
     Active Substance: ACTIVATED CHARCOAL
     Indication: DIARRHOEA
     Dosage: 250 OT, UNK
     Route: 048
     Dates: start: 20180528, end: 20180603
  26. VOTRIENT [Suspect]
     Active Substance: PAZOPANIB HYDROCHLORIDE
     Dosage: 400 OT, UNK
     Route: 048
     Dates: start: 20171205, end: 20180101
  27. CEPHALEXIN. [Concomitant]
     Active Substance: CEPHALEXIN
     Dosage: 250 OT, UNK
     Route: 048
     Dates: start: 20180502, end: 20180508
  28. CLONAZEPAM. [Concomitant]
     Active Substance: CLONAZEPAM
     Indication: INSOMNIA
     Dosage: 0.5 OT, UNK
     Route: 048
     Dates: start: 20180403, end: 20180502
  29. MORPHINE HCL [Concomitant]
     Active Substance: MORPHINE HYDROCHLORIDE
     Indication: BACK PAIN
     Dosage: 2.5 OT, UNK
     Route: 048
     Dates: start: 20180528, end: 20180610

REACTIONS (7)
  - Transaminases increased [Recovered/Resolved]
  - Cough [Recovered/Resolved]
  - Cough [Recovered/Resolved]
  - Constipation [Recovered/Resolved]
  - Hepatotoxicity [Recovered/Resolved]
  - Vomiting [Recovered/Resolved]
  - Urinary tract infection [Recovered/Resolved]

NARRATIVE: CASE EVENT DATE: 20171120
